FAERS Safety Report 5400905-9 (Version None)
Quarter: 2007Q3

REPORT INFORMATION
  Report Type: 
  Country: None (occurrence: None)
  Receive Date: 20070730
  Receipt Date: 20060623
  Transmission Date: 20080115
  Serious: No
  Sender: FDA-Public Use
  Company Number: A0610184A

PATIENT
  Age: 6 Month
  Sex: Female

DRUGS (1)
  1. ZANTAC 150 [Suspect]
     Indication: GASTROOESOPHAGEAL REFLUX DISEASE
     Dosage: .03ML THREE TIMES PER DAY
     Route: 048
     Dates: start: 20060617

REACTIONS (8)
  - ACCIDENTAL OVERDOSE [None]
  - DIARRHOEA [None]
  - DRUG DISPENSING ERROR [None]
  - FAECAL VOLUME INCREASED [None]
  - HYPERSOMNIA [None]
  - INCORRECT DOSE ADMINISTERED [None]
  - IRRITABILITY [None]
  - RECTAL TENESMUS [None]
